FAERS Safety Report 5695470-5 (Version None)
Quarter: 2008Q2

REPORT INFORMATION
  Report Type: 
  Country: None (occurrence: None)
  Receive Date: 20080403
  Receipt Date: 20080318
  Transmission Date: 20081010
  Serious: Yes (Hospitalization)
  Sender: FDA-Public Use
  Company Number: 2008BI004659

PATIENT
  Age: 37 Year
  Sex: Female
  Weight: 120.2032 kg

DRUGS (5)
  1. AVONEX [Suspect]
     Indication: MULTIPLE SCLEROSIS
     Dosage: 30 UG; QW; IM
     Route: 030
     Dates: start: 19970311, end: 20080116
  2. WELLBUTRIN SR [Concomitant]
  3. STRATTERA [Concomitant]
  4. PREDNISONE [Concomitant]
  5. KLONOPIN [Concomitant]

REACTIONS (16)
  - ABASIA [None]
  - BLOOD PRESSURE INCREASED [None]
  - DISEASE PROGRESSION [None]
  - DIZZINESS [None]
  - GLUCOSE URINE PRESENT [None]
  - HEADACHE [None]
  - HEMIPARESIS [None]
  - HYPERGLYCAEMIA [None]
  - HYPOAESTHESIA [None]
  - MANIA [None]
  - MULTIPLE SCLEROSIS [None]
  - NAUSEA [None]
  - PALPITATIONS [None]
  - SALIVARY HYPERSECRETION [None]
  - SPEECH DISORDER [None]
  - VISUAL DISTURBANCE [None]
